FAERS Safety Report 9248830 (Version 9)
Quarter: 2013Q4

REPORT INFORMATION
  Report Type: Spontaneous
  Country: US (occurrence: US)
  Receive Date: 20130423
  Receipt Date: 20131115
  Transmission Date: 20140711
  Serious: Yes (Hospitalization, Other)
  Sender: FDA-Public Use
  Company Number: US-009507513-1304USA008487

PATIENT
  Sex: Female
  Weight: 68.27 kg

DRUGS (6)
  1. FOSAMAX [Suspect]
     Indication: OSTEOPOROSIS
     Dosage: 70 MG, UNK
     Route: 048
     Dates: start: 200207, end: 20070213
  2. FOSAMAX PLUS D [Suspect]
     Indication: OSTEOPOROSIS
     Dosage: 70 MG/2800 IU, QW
     Route: 048
     Dates: start: 20070213, end: 20111208
  3. VITAMINS (UNSPECIFIED) [Concomitant]
     Dosage: 1 DF, QD
     Dates: start: 1998
  4. ASCORBIC ACID [Concomitant]
     Dosage: 500 MG, UNK
     Dates: start: 1998
  5. CALCIUM (UNSPECIFIED) [Concomitant]
     Dosage: 600 MG, UNK
     Dates: start: 1998
  6. VITAMIN D (UNSPECIFIED) [Concomitant]
     Dosage: 1000 IU, UNK
     Dates: start: 1998

REACTIONS (25)
  - Intramedullary rod insertion [Unknown]
  - Anaemia postoperative [Recovering/Resolving]
  - Leukocytosis [Recovering/Resolving]
  - Intramedullary rod insertion [Unknown]
  - Humerus fracture [Unknown]
  - Knee arthroplasty [Unknown]
  - Knee operation [Unknown]
  - Femur fracture [Recovered/Resolved]
  - Dental prosthesis placement [Unknown]
  - Dental implantation [Unknown]
  - Gingival disorder [Unknown]
  - Periodontal operation [Unknown]
  - Osteopenia [Unknown]
  - Cataract operation [Unknown]
  - Osteoarthritis [Unknown]
  - Foot fracture [Unknown]
  - Arthritis [Unknown]
  - Pain [Unknown]
  - Exostosis [Unknown]
  - Cataract [Unknown]
  - Breast cyst [Unknown]
  - Arthritis [Unknown]
  - Aspiration breast [Unknown]
  - Drug ineffective [Unknown]
  - Neck pain [Recovering/Resolving]
